FAERS Safety Report 25576056 (Version 2)
Quarter: 2025Q3

REPORT INFORMATION
  Report Type: Spontaneous
  Country: US (occurrence: US)
  Receive Date: 20250718
  Receipt Date: 20250920
  Transmission Date: 20251021
  Serious: No
  Sender: SANOFI AVENTIS
  Company Number: US-SA-2025SA201338

PATIENT
  Age: 29 Year
  Sex: Female
  Weight: 67.58 kg

DRUGS (1)
  1. DUPIXENT [Suspect]
     Active Substance: DUPILUMAB
     Indication: Dermatitis atopic
     Dosage: 300 MG, QOW
     Route: 058

REACTIONS (12)
  - Arthritis [Unknown]
  - Flank pain [Unknown]
  - Condition aggravated [Unknown]
  - Pain [Unknown]
  - Peripheral swelling [Unknown]
  - Rash erythematous [Not Recovered/Not Resolved]
  - Antinuclear antibody increased [Recovered/Resolved]
  - White blood cell count decreased [Recovered/Resolved]
  - Eczema [Unknown]
  - Dermatitis atopic [Not Recovered/Not Resolved]
  - Product dose omission issue [Not Recovered/Not Resolved]
  - Rash [Not Recovered/Not Resolved]
